FAERS Safety Report 9199045 (Version 2)
Quarter: 2013Q2

REPORT INFORMATION
  Report Type: Spontaneous
  Country: JP (occurrence: JP)
  Receive Date: 20130329
  Receipt Date: 20130604
  Transmission Date: 20140414
  Serious: Yes (Hospitalization)
  Sender: FDA-Public Use
  Company Number: JP-009507513-1303JPN013807

PATIENT
  Age: 57 Year
  Sex: Female
  Weight: 66 kg

DRUGS (6)
  1. PEGINTRON [Suspect]
     Indication: CHRONIC HEPATITIS C
     Dosage: 80 MICROGRAM PER KILOGRAM, QD
     Route: 058
     Dates: start: 20130214, end: 20130307
  2. PEGINTRON [Suspect]
     Indication: CHRONIC HEPATITIS C
  3. REBETOL [Suspect]
     Indication: CHRONIC HEPATITIS C
     Dosage: 800 MG, QD
     Route: 048
     Dates: start: 20130214, end: 20130306
  4. REBETOL [Suspect]
     Dosage: 400 MG, QD
     Route: 048
     Dates: start: 20130307
  5. TELAVIC [Suspect]
     Indication: CHRONIC HEPATITIS C
     Dosage: 1500,MG, QD
     Route: 048
     Dates: start: 20130214
  6. URSO [Concomitant]
     Indication: CHRONIC HEPATITIS C
     Dosage: 600 MG, QD
     Route: 048

REACTIONS (2)
  - Drug eruption [Not Recovered/Not Resolved]
  - Toxic skin eruption [Recovering/Resolving]
